FAERS Safety Report 7229776-5 (Version None)
Quarter: 2011Q1

REPORT INFORMATION
  Report Type: 
  Country: None (occurrence: None)
  Receive Date: 20110117
  Receipt Date: 20110111
  Transmission Date: 20110831
  Serious: Yes (Death)
  Sender: FDA-Public Use
  Company Number: US-PFIZER INC-2011007274

PATIENT
  Sex: Male
  Weight: 63.492 kg

DRUGS (1)
  1. CHANTIX [Suspect]
     Dosage: UNK
     Route: 048
     Dates: start: 20101001

REACTIONS (2)
  - GUN SHOT WOUND [None]
  - FEELING ABNORMAL [None]
